FAERS Safety Report 9385055 (Version 1)
Quarter: 2013Q3

REPORT INFORMATION
  Report Type: Spontaneous
  Country: GB (occurrence: None)
  Receive Date: 20130701
  Receipt Date: 20130701
  Transmission Date: 20140515
  Serious: Yes (Other)
  Sender: FDA-Public Use
  Company Number: GB-1198732

PATIENT
  Sex: 0

DRUGS (1)
  1. BSS INTRAOCULAR SOLUTION (BSS) [Suspect]
     Indication: CATARACT OPERATION
     Route: 031

REACTIONS (1)
  - Toxic anterior segment syndrome [None]
